FAERS Safety Report 4388451-5 (Version None)
Quarter: 2004Q3

REPORT INFORMATION
  Report Type: 
  Country: None (occurrence: None)
  Receive Date: 20040701
  Receipt Date: 20040624
  Transmission Date: 20050211
  Serious: Yes (Hospitalization)
  Sender: FDA-Public Use
  Company Number: FR-BRISTOL-MYERS SQUIBB COMPANY-12624912

PATIENT
  Age: 42 Year
  Sex: Female

DRUGS (2)
  1. HYDREA [Suspect]
     Indication: THROMBOCYTHAEMIA
     Route: 048
     Dates: start: 20010101
  2. ASPIRIN [Suspect]
     Route: 048
     Dates: start: 20010101

REACTIONS (3)
  - ABORTION INDUCED [None]
  - DRUG EXPOSURE DURING PREGNANCY [None]
  - TWIN PREGNANCY [None]
